FAERS Safety Report 4981853-5 (Version None)
Quarter: 2006Q2

REPORT INFORMATION
  Report Type: 
  Country: None (occurrence: None)
  Receive Date: 20060425
  Receipt Date: 20060327
  Transmission Date: 20061013
  Serious: Yes (Hospitalization, Disabling)
  Sender: FDA-Public Use
  Company Number: CN-JNJFOC-20060306821

PATIENT
  Age: 7 Year
  Sex: Male

DRUGS (1)
  1. IMODIUM [Suspect]
     Route: 048

REACTIONS (5)
  - ENTERITIS [None]
  - ILEUS PARALYTIC [None]
  - MUSCLE ATROPHY [None]
  - SEPSIS [None]
  - WALKING DISABILITY [None]
